FAERS Safety Report 24229078 (Version 1)
Quarter: 2024Q3

REPORT INFORMATION
  Report Type: Report from Study
  Country: US (occurrence: US)
  Receive Date: 20240820
  Receipt Date: 20240820
  Transmission Date: 20241017
  Serious: Yes (Hospitalization)
  Sender: EISAI
  Company Number: US-Eisai-EC-2024-172359

PATIENT
  Age: 74 Year
  Sex: Female
  Weight: 81 kg

DRUGS (6)
  1. LENVIMA [Suspect]
     Active Substance: LENVATINIB
     Indication: Renal cancer
     Dosage: SCHEDULED TO INCREASE TO 14 MG ONCE DAILY PENDING DELIVERY OF 14 MG SHIPMENT
     Route: 048
     Dates: start: 20240408
  2. LENVIMA [Suspect]
     Active Substance: LENVATINIB
     Route: 048
     Dates: start: 2024, end: 202407
  3. LENVIMA [Suspect]
     Active Substance: LENVATINIB
     Route: 048
     Dates: start: 202407, end: 20240722
  4. LENVIMA [Suspect]
     Active Substance: LENVATINIB
     Route: 048
     Dates: start: 2024
  5. KEYTRUDA [Concomitant]
     Active Substance: PEMBROLIZUMAB
     Indication: Renal cell carcinoma
     Route: 042
     Dates: start: 20240408
  6. ELIQUIS [Concomitant]
     Active Substance: APIXABAN

REACTIONS (3)
  - Pneumonia [Recovered/Resolved]
  - Haematochezia [Unknown]
  - Vaginal haemorrhage [Unknown]

NARRATIVE: CASE EVENT DATE: 20240723
